FAERS Safety Report 10187899 (Version 1)
Quarter: 2014Q2

REPORT INFORMATION
  Report Type: Spontaneous
  Country: US (occurrence: US)
  Receive Date: 20140522
  Receipt Date: 20140522
  Transmission Date: 20141212
  Serious: No
  Sender: FDA-Public Use
  Company Number: US-SANOFI-AVENTIS-2013SA093232

PATIENT
  Age: 68 Year
  Sex: Female
  Weight: 76.2 kg

DRUGS (5)
  1. LANTUS [Suspect]
     Indication: TYPE 2 DIABETES MELLITUS
     Dosage: TAKEN FROM:MANY YEARS AGO?DOSE: 21-23 UNITS
     Route: 065
  2. METFORMIN [Concomitant]
  3. NOVOLOG [Concomitant]
  4. LEVOTHYROXINE SODIUM [Concomitant]
  5. ANTIHYPERTENSIVES [Concomitant]

REACTIONS (3)
  - Weight decreased [Unknown]
  - Blood glucose increased [Recovered/Resolved]
  - Drug ineffective [Unknown]
